FAERS Safety Report 4708163-5 (Version None)
Quarter: 2005Q3

REPORT INFORMATION
  Report Type: 
  Country: None (occurrence: None)
  Receive Date: 20050707
  Receipt Date: 20050627
  Transmission Date: 20060218
  Serious: Yes (Other)
  Sender: FDA-Public Use
  Company Number: US-AMGEN-US140590

PATIENT
  Age: 51 Year
  Sex: Male
  Weight: 175 kg

DRUGS (6)
  1. KEPIVANCE [Suspect]
     Indication: DRUG USE FOR UNKNOWN INDICATION
     Route: 042
     Dates: start: 20050528, end: 20050610
  2. CEFTAZIDIME [Concomitant]
     Dates: start: 20050612
  3. FLUCONAZOLE [Concomitant]
     Dates: start: 20050608
  4. LEVOFLOXACIN [Concomitant]
     Dates: start: 20050613
  5. VANCOMYCIN [Concomitant]
     Dates: start: 20050614
  6. VERAPAMIL [Concomitant]
     Dates: start: 20050608

REACTIONS (2)
  - BLOOD STEM CELL TRANSPLANT FAILURE [None]
  - CAPILLARY LEAK SYNDROME [None]
